FAERS Safety Report 22593739 (Version 2)
Quarter: 2023Q2

REPORT INFORMATION
  Report Type: Spontaneous
  Country: US (occurrence: None)
  Receive Date: 20230613
  Receipt Date: 20230616
  Transmission Date: 20230722
  Serious: Yes (Other)
  Sender: FDA-Public Use
  Company Number: 2023A132146

PATIENT
  Age: 29 Year
  Sex: Female
  Weight: 215 kg

DRUGS (7)
  1. QUETIAPINE [Suspect]
     Active Substance: QUETIAPINE
     Indication: Depression
     Route: 048
     Dates: start: 20220726
  2. QUETIAPINE [Suspect]
     Active Substance: QUETIAPINE
     Indication: Anxiety
     Route: 048
     Dates: start: 20220726
  3. ARIPIPRAZOLE [Suspect]
     Active Substance: ARIPIPRAZOLE
     Indication: Depression
     Dates: start: 20220726
  4. ARIPIPRAZOLE [Suspect]
     Active Substance: ARIPIPRAZOLE
     Indication: Anxiety
     Dates: start: 20220726
  5. PRAZOSIN [Suspect]
     Active Substance: PRAZOSIN
     Indication: Post-traumatic stress disorder
     Dates: start: 20220726
  6. LEVOTHYROXINE [Suspect]
     Active Substance: LEVOTHYROXINE
     Indication: Hypothyroidism
     Dates: start: 20220726
  7. IRON [Suspect]
     Active Substance: IRON
     Indication: Iron deficiency
     Dates: start: 20220726

REACTIONS (2)
  - Exposure during pregnancy [Unknown]
  - Abortion spontaneous [Unknown]

NARRATIVE: CASE EVENT DATE: 20221018
